FAERS Safety Report 18826520 (Version 1)
Quarter: 2021Q1

REPORT INFORMATION
  Report Type: Spontaneous
  Country: CN (occurrence: CN)
  Receive Date: 20210202
  Receipt Date: 20210202
  Transmission Date: 20210419
  Serious: Yes (Other)
  Sender: FDA-Public Use
  Company Number: CN-TAKEDA-2021TUS004359

PATIENT
  Age: 10 Year
  Sex: Male

DRUGS (5)
  1. BORTEZOMIB. [Suspect]
     Active Substance: BORTEZOMIB
     Indication: B-CELL TYPE ACUTE LEUKAEMIA
     Dosage: 1.3 MILLIGRAM/SQ. METER
     Route: 065
  2. DEXAMETHASONE. [Suspect]
     Active Substance: DEXAMETHASONE
     Indication: B-CELL TYPE ACUTE LEUKAEMIA
     Dosage: 6 MILLIGRAM/SQ. METER, QD
     Route: 065
     Dates: start: 20181121
  3. VINDESINE [Suspect]
     Active Substance: VINDESINE
     Indication: B-CELL TYPE ACUTE LEUKAEMIA
     Dosage: 1.5 MILLIGRAM/SQ. METER, 1/WEEK
     Route: 065
     Dates: start: 20181121
  4. IDARUBICIN [Suspect]
     Active Substance: IDARUBICIN
     Indication: B-CELL TYPE ACUTE LEUKAEMIA
     Dosage: 10 MILLIGRAM/SQ. METER, 1/WEEK
     Route: 065
     Dates: start: 20181121
  5. PEGASPARGASE [Suspect]
     Active Substance: PEGASPARGASE
     Indication: B-CELL TYPE ACUTE LEUKAEMIA
     Dosage: UNK
     Route: 065
     Dates: start: 20181121

REACTIONS (4)
  - Graft versus host disease [Recovering/Resolving]
  - Sepsis [Recovering/Resolving]
  - Off label use [Unknown]
  - Myelosuppression [Unknown]
